FAERS Safety Report 9734234 (Version 2)
Quarter: 2014Q1

REPORT INFORMATION
  Report Type: Report from Study
  Country: IT (occurrence: IT)
  Receive Date: 20131205
  Receipt Date: 20140207
  Transmission Date: 20141002
  Serious: Yes (Hospitalization)
  Sender: FDA-Public Use
  Company Number: IT-AMGEN-ITACT2013084512

PATIENT
  Age: 82 Year
  Sex: Male

DRUGS (10)
  1. PANITUMUMAB [Suspect]
     Indication: RECTAL CANCER
     Dosage: UNK
     Route: 065
     Dates: start: 20131029
  2. TORASEMID [Concomitant]
  3. ADALAT CRONO [Concomitant]
  4. TRIATEC                            /00116401/ [Concomitant]
  5. SELEPARINA [Concomitant]
  6. MEPRAL                             /00661201/ [Concomitant]
  7. ZYLORIC [Concomitant]
  8. CITALOPRAM [Concomitant]
  9. VIGOR                              /00110502/ [Concomitant]
  10. DELTACORTENE [Concomitant]

REACTIONS (1)
  - Atrial fibrillation [Not Recovered/Not Resolved]
